FAERS Safety Report 15028746 (Version 1)
Quarter: 2018Q2

REPORT INFORMATION
  Report Type: Spontaneous
  Country: US (occurrence: US)
  Receive Date: 20180528
  Receipt Date: 20180528
  Transmission Date: 20180711
  Serious: Yes (Life-Threatening, Hospitalization, Disabling)
  Sender: FDA-Public Use
  Company Number: None

PATIENT
  Age: 19 Year
  Sex: Female
  Weight: 121 kg

DRUGS (2)
  1. TRI-LINYAH [Suspect]
     Active Substance: ETHINYL ESTRADIOL\NORGESTIMATE
     Indication: MENORRHAGIA
     Route: 048
  2. IBUPROFEN. [Concomitant]
     Active Substance: IBUPROFEN

REACTIONS (9)
  - Troponin increased [None]
  - Arthralgia [None]
  - Pleuritic pain [None]
  - Hypoxia [None]
  - Tachycardia [None]
  - Right ventricular failure [None]
  - Dyspnoea [None]
  - Pulmonary embolism [None]
  - Electrocardiogram abnormal [None]

NARRATIVE: CASE EVENT DATE: 20171016
